FAERS Safety Report 25637081 (Version 5)
Quarter: 2025Q3

REPORT INFORMATION
  Report Type: Spontaneous
  Country: JP (occurrence: JP)
  Receive Date: 20250804
  Receipt Date: 20250828
  Transmission Date: 20251021
  Serious: Yes (Hospitalization, Other)
  Sender: NOVO NORDISK
  Company Number: JP-NOVOPROD-1487842

PATIENT
  Age: 76 Year
  Sex: Male

DRUGS (2)
  1. SOGROYA [Suspect]
     Active Substance: SOMAPACITAN-BECO
     Indication: Hypopituitarism
     Dosage: 3 MG, QW
     Route: 058
  2. CORTRIL [Concomitant]
     Active Substance: HYDROCORTISONE

REACTIONS (2)
  - Alanine aminotransferase increased [Not Recovered/Not Resolved]
  - Dehydration [Recovering/Resolving]

NARRATIVE: CASE EVENT DATE: 20250709
